FAERS Safety Report 22089501 (Version 1)
Quarter: 2023Q1

REPORT INFORMATION
  Report Type: Report from Study
  Country: FR (occurrence: FR)
  Receive Date: 20230313
  Receipt Date: 20230313
  Transmission Date: 20230417
  Serious: Yes (Death, Hospitalization)
  Sender: FDA-Public Use
  Company Number: FR-EXELIXIS-XL18423061615

PATIENT

DRUGS (13)
  1. CABOZANTINIB [Suspect]
     Active Substance: CABOZANTINIB
     Indication: Hepatocellular carcinoma
     Dosage: 60 MG, QD
     Route: 048
     Dates: start: 20200110, end: 20200115
  2. CABOZANTINIB [Suspect]
     Active Substance: CABOZANTINIB
     Dosage: 30 MG, QD
     Route: 048
     Dates: start: 20200116, end: 20200119
  3. CABOZANTINIB [Suspect]
     Active Substance: CABOZANTINIB
     Dosage: 20 MG, QD
     Route: 048
     Dates: start: 20200306, end: 20200313
  4. ASPIRIN [Concomitant]
     Active Substance: ASPIRIN
  5. ACEBUTOLOL [Concomitant]
     Active Substance: ACEBUTOLOL
  6. TENOFOVIR [Concomitant]
     Active Substance: TENOFOVIR
  7. DENOSUMAB [Concomitant]
     Active Substance: DENOSUMAB
  8. GABAPENTIN [Concomitant]
     Active Substance: GABAPENTIN
  9. METOPIMAZINA [Concomitant]
  10. MORPHINE [Concomitant]
     Active Substance: MORPHINE
  11. ACETAMINOPHEN [Concomitant]
     Active Substance: ACETAMINOPHEN
  12. PHOSPHORIC ACID [Concomitant]
     Active Substance: PHOSPHORIC ACID
  13. NALOXEGOL [Concomitant]
     Active Substance: NALOXEGOL

REACTIONS (1)
  - COVID-19 [Fatal]

NARRATIVE: CASE EVENT DATE: 20200313
